FAERS Safety Report 4375597-0 (Version None)
Quarter: 2004Q2

REPORT INFORMATION
  Report Type: 
  Country: None (occurrence: None)
  Receive Date: 20040607
  Receipt Date: 20040427
  Transmission Date: 20050107
  Serious: Yes (Hospitalization, Other)
  Sender: FDA-Public Use
  Company Number: KII-2004-0010788

PATIENT
  Age: 48 Year
  Sex: Female

DRUGS (4)
  1. MORPHINE SULFATE (MORPHINE SULFATE) [Suspect]
     Indication: CANCER PAIN
     Dosage: ORAL
     Route: 048
  2. BENZODIAZEPINE DERIVATIVES [Suspect]
     Indication: DRUG USE FOR UNKNOWN INDICATION
     Dosage: ORAL
     Route: 048
  3. LAXATIVES [Suspect]
     Indication: DRUG USE FOR UNKNOWN INDICATION
     Dosage: ORAL
     Route: 048
  4. THYROID PREPARATION [Suspect]
     Indication: DRUG USE FOR UNKNOWN INDICATION
     Dosage: ORAL
     Route: 048

REACTIONS (10)
  - BRADYCARDIA [None]
  - DECEREBRATION [None]
  - DEPRESSED LEVEL OF CONSCIOUSNESS [None]
  - HYPOXIA [None]
  - INJURY [None]
  - MALAISE [None]
  - METASTASIS [None]
  - PROCEDURAL COMPLICATION [None]
  - RESPIRATORY RATE DECREASED [None]
  - THROAT CANCER [None]
